FAERS Safety Report 6191363-8 (Version None)
Quarter: 2009Q2

REPORT INFORMATION
  Report Type: 
  Country: None (occurrence: None)
  Receive Date: 20090515
  Receipt Date: 20090504
  Transmission Date: 20091009
  Serious: Yes (Other)
  Sender: FDA-Public Use
  Company Number: CA-JNJFOC-20090500805

PATIENT
  Sex: Male
  Weight: 75.2 kg

DRUGS (1)
  1. REMICADE [Suspect]
     Indication: RHEUMATOID ARTHRITIS
     Dosage: TO PRESENT, TOTAL OF 21 DOSES
     Route: 042

REACTIONS (1)
  - GALLBLADDER DISORDER [None]
